FAERS Safety Report 21987988 (Version 4)
Quarter: 2023Q1

REPORT INFORMATION
  Report Type: Spontaneous
  Country: DE (occurrence: DE)
  Receive Date: 20230214
  Receipt Date: 20230321
  Transmission Date: 20230417
  Serious: Yes (Hospitalization, Other)
  Sender: FDA-Public Use
  Company Number: DE-BFARM-23000736

PATIENT
  Age: 69 Year
  Sex: Male
  Weight: 72.5 kg

DRUGS (21)
  1. ROSUVASTATIN [Suspect]
     Active Substance: ROSUVASTATIN
     Indication: Product used for unknown indication
     Dosage: 10 MILLIGRAM, ONCE A DAY (REDUZIERUNG AUF 10 MG: 22.09.2020-13.08.2021)
     Route: 065
     Dates: start: 20200922, end: 20210813
  2. ROSUVASTATIN [Suspect]
     Active Substance: ROSUVASTATIN
     Dosage: 20 MILLIGRAM, ONCE A DAY (20 MG 0-0-1)
     Route: 065
     Dates: start: 20200216, end: 20200921
  3. ROSUVASTATIN [Suspect]
     Active Substance: ROSUVASTATIN
     Dosage: 30 MILLIGRAM, ONCE A DAY
     Route: 065
     Dates: start: 20210401, end: 20210810
  4. FLUVASTATIN [Suspect]
     Active Substance: FLUVASTATIN SODIUM
     Indication: Product used for unknown indication
     Dosage: 20 MILLIGRAM, TWO TIMES A DAY(20 MG EVERY OTHER DAY)
     Route: 065
     Dates: start: 20221024, end: 20221117
  5. BEMPEDOIC ACID [Suspect]
     Active Substance: BEMPEDOIC ACID
     Indication: Product used for unknown indication
     Dosage: 180 MILLIGRAM
     Route: 065
     Dates: start: 20220102, end: 20220823
  6. BEMPEDOIC ACID [Suspect]
     Active Substance: BEMPEDOIC ACID
     Dosage: 180 MILLIGRAM
     Route: 065
     Dates: start: 20210901, end: 20210929
  7. BEMPEDOIC ACID [Suspect]
     Active Substance: BEMPEDOIC ACID
     Dosage: 180 MILLIGRAM
     Route: 065
     Dates: start: 20220912, end: 20221013
  8. BEMPEDOIC ACID [Suspect]
     Active Substance: BEMPEDOIC ACID
     Dosage: 180 MILLIGRAM
     Route: 065
     Dates: start: 20220207, end: 20220823
  9. CANDESARTAN [Concomitant]
     Active Substance: CANDESARTAN
     Indication: Product used for unknown indication
     Dosage: 20 MILLIGRAM (0.5 DAY)
     Route: 065
     Dates: start: 20191122
  10. BISOPROLOL [Concomitant]
     Active Substance: BISOPROLOL
     Indication: Product used for unknown indication
     Dosage: 1.25 MILLIGRAM, ONCE A DAY (1-0-0)
     Route: 065
     Dates: start: 20191122
  11. LERCANIDIPINE [Concomitant]
     Active Substance: LERCANIDIPINE
     Indication: Product used for unknown indication
     Dosage: 10 MILLIGRAM, ONCE A DAY (1-0-0)
     Route: 065
     Dates: start: 20191122
  12. LERCANIDIPINE [Concomitant]
     Active Substance: LERCANIDIPINE
     Dosage: 15 MILLIGRAM, ONCE A DAY (1-0-0-1/2 )
     Route: 065
     Dates: start: 20191122
  13. ASPIRIN [Concomitant]
     Active Substance: ASPIRIN
     Indication: Product used for unknown indication
     Dosage: 100 MILLIGRAM (0-1-1, 0.5 DAY)
     Route: 065
     Dates: start: 20191122
  14. PANTOPRAZOLE SODIUM [Concomitant]
     Active Substance: PANTOPRAZOLE SODIUM
     Indication: Product used for unknown indication
     Dosage: 20 MILLIGRAM, ONCE A DAY (1-0-0)
     Route: 065
  15. VITAMIN B12 [Concomitant]
     Active Substance: CYANOCOBALAMIN
     Indication: Iron deficiency
     Dosage: 1X MON. S.C. ZULETZT VOR 8D
     Route: 058
  16. Ferro Sanol Comp [Concomitant]
     Indication: Iron deficiency
     Dosage: 30 MILLIGRAM, 3 TIMES A DAY (1-1-1 30 MG )
     Route: 065
  17. Ferro Sanol Comp [Concomitant]
     Indication: Vitamin B12 deficiency
  18. METAMIZOLE [Concomitant]
     Active Substance: METAMIZOLE
     Indication: Product used for unknown indication
     Dosage: 500 MILLIGRAM, 3 TIMES A DAY
     Route: 065
     Dates: start: 20220711, end: 20220718
  19. REPATHA [Concomitant]
     Active Substance: EVOLOCUMAB
     Indication: Product used for unknown indication
     Dosage: EVERY 14 DAYS
     Route: 065
     Dates: start: 20211018
  20. PANTOPRAZOLE SODIUM [Concomitant]
     Active Substance: PANTOPRAZOLE SODIUM
     Indication: Product used for unknown indication
     Dosage: 40 MILLIGRAM, ONCE A DAY (1-0-0)
     Route: 065
  21. CANDESARTAN [Concomitant]
     Active Substance: CANDESARTAN
     Indication: Product used for unknown indication
     Dosage: 40 MILLIGRAM, ONCE A DAY (0-1-1)
     Route: 065
     Dates: start: 20191122

REACTIONS (26)
  - Seizure [Recovered/Resolved]
  - Monoparesis [Unknown]
  - Hemiparesis [Unknown]
  - Epilepsy [Unknown]
  - Dizziness [Unknown]
  - Sleep disorder [Unknown]
  - Myalgia [Unknown]
  - Nausea [Unknown]
  - Blood creatine phosphokinase increased [Unknown]
  - Bone pain [Unknown]
  - Muscular weakness [Unknown]
  - Muscle spasms [Unknown]
  - Dysstasia [Unknown]
  - Tongue biting [Unknown]
  - Headache [Unknown]
  - Middle insomnia [Unknown]
  - Pain in extremity [Unknown]
  - Malaise [Unknown]
  - Bone pain [Unknown]
  - Dizziness [Unknown]
  - Blood creatine phosphokinase increased [Unknown]
  - Arthralgia [Unknown]
  - Muscle spasms [Unknown]
  - Sleep disorder [Unknown]
  - Fear of disease [Unknown]
  - Adverse reaction [Unknown]

NARRATIVE: CASE EVENT DATE: 20221101
